FAERS Safety Report 5657006-4 (Version None)
Quarter: 2008Q1

REPORT INFORMATION
  Report Type: 
  Country: None (occurrence: None)
  Receive Date: 20080310
  Receipt Date: 20080227
  Transmission Date: 20080703
  Serious: Yes (Hospitalization, Other)
  Sender: FDA-Public Use
  Company Number: US-ROCHE-521375

PATIENT
  Sex: Female
  Weight: 83.9 kg

DRUGS (4)
  1. ACCUTANE [Suspect]
     Indication: ACNE
     Route: 048
     Dates: start: 19900614
  2. ACCUTANE [Suspect]
     Route: 048
     Dates: start: 19900918, end: 19901203
  3. ACCUTANE [Suspect]
     Route: 048
     Dates: start: 19970328, end: 19970428
  4. ZITHROMAX [Concomitant]
     Indication: DRUG USE FOR UNKNOWN INDICATION

REACTIONS (18)
  - ANXIETY [None]
  - CHOLELITHIASIS [None]
  - COLON ADENOMA [None]
  - CROHN'S DISEASE [None]
  - DEPRESSION [None]
  - DIVERTICULUM [None]
  - DUODENITIS [None]
  - FEAR [None]
  - GASTROINTESTINAL ULCER [None]
  - GASTROOESOPHAGEAL REFLUX DISEASE [None]
  - INFLAMMATORY BOWEL DISEASE [None]
  - MENORRHAGIA [None]
  - OESOPHAGITIS [None]
  - RASH [None]
  - RECTAL POLYP [None]
  - SMALL INTESTINAL OBSTRUCTION [None]
  - STRESS [None]
  - WEIGHT DECREASED [None]
